FAERS Safety Report 13390556 (Version 4)
Quarter: 2017Q2

REPORT INFORMATION
  Report Type: Report from Study
  Country: TH (occurrence: TH)
  Receive Date: 20170331
  Receipt Date: 20170529
  Transmission Date: 20170830
  Serious: Yes (Death, Life-Threatening)
  Sender: FDA-Public Use
  Company Number: TH-CIPLA LTD.-2017TH05078

PATIENT

DRUGS (80)
  1. METRONIDAZOLE. [Concomitant]
     Active Substance: METRONIDAZOLE
     Indication: INFECTION
     Dosage: 1600 MG, QD
     Route: 048
     Dates: start: 20170322, end: 20170323
  2. METHOTREXATE. [Concomitant]
     Active Substance: METHOTREXATE
     Indication: CHEMOTHERAPY
     Dosage: 5000 MG, QD
     Route: 042
     Dates: start: 20170306, end: 20170306
  3. OLIVE OIL [Concomitant]
     Active Substance: OLIVE OIL
     Indication: SKIN EXFOLIATION
     Dosage: 30 ML, BID
     Route: 061
     Dates: start: 20170322, end: 20170330
  4. PARACETAMOL [Concomitant]
     Active Substance: ACETAMINOPHEN
     Dosage: 500 MG, PRN, BY TUBE FEED
     Dates: start: 20170323, end: 20170330
  5. LIPOSOMAL AMPHOTERICIN B [Suspect]
     Active Substance: AMPHOTERICIN B
     Dosage: 3 MG/KG, PER DAY
     Route: 042
     Dates: start: 20170328, end: 20170328
  6. LIPOSOMAL AMPHOTERICIN B [Suspect]
     Active Substance: AMPHOTERICIN B
     Dosage: 3 MG/KG, PER DAY
     Route: 042
     Dates: start: 20170329, end: 20170329
  7. HYDROCORTISONE. [Concomitant]
     Active Substance: HYDROCORTISONE
     Indication: SEPTIC SHOCK
     Dosage: 200 MG, QID
     Route: 042
     Dates: start: 20170327
  8. MEROPENEM. [Concomitant]
     Active Substance: MEROPENEM
     Indication: FEBRILE NEUTROPENIA
     Dosage: 3 G, TID
     Route: 042
     Dates: start: 20170314, end: 20170331
  9. ACETYLCYSTEINE. [Concomitant]
     Active Substance: ACETYLCYSTEINE
     Indication: SECRETION DISCHARGE
     Dosage: 600 MG, TID
     Route: 048
     Dates: start: 20170313, end: 20170330
  10. ALUMINIUM/MAGNESIUM [Concomitant]
     Active Substance: ALUMINUM HYDROXIDE\MAGNESIUM HYDROXIDE
     Indication: CONSTIPATION
     Dosage: 30 ML, PRN
     Route: 048
     Dates: start: 20170317, end: 20170318
  11. DOXORUBICIN [Concomitant]
     Active Substance: DOXORUBICIN
     Indication: CHEMOTHERAPY
     Dosage: 70 MG, QD
     Route: 042
     Dates: start: 20170308, end: 20170308
  12. FUROSEMIDE. [Concomitant]
     Active Substance: FUROSEMIDE
     Indication: FLUID OVERLOAD
     Dosage: 80 MG, QD
     Route: 042
     Dates: start: 20170308, end: 20170308
  13. LEUCOVORIN CALCIUM. [Concomitant]
     Active Substance: LEUCOVORIN CALCIUM
     Indication: CHEMOTHERAPY
     Dosage: 80 MG, QID
     Route: 042
     Dates: start: 20170307, end: 20170331
  14. MORPHINE [Concomitant]
     Active Substance: MORPHINE
     Dosage: 30 MG, QD
     Route: 042
     Dates: start: 20170327, end: 20170330
  15. KCL [Concomitant]
     Active Substance: POTASSIUM CHLORIDE
     Dosage: 60 MEQ (20 MEQ/10ML)
     Route: 065
     Dates: start: 20170324
  16. AMPHOTERICIN B. [Concomitant]
     Active Substance: AMPHOTERICIN B
     Indication: FUNGAL INFECTION
     Dosage: 50 MG, QD
     Route: 042
     Dates: start: 20170423, end: 20170325
  17. DIPOTASSIUM PHOSPHATE [Concomitant]
     Active Substance: POTASSIUM PHOSPHATE, DIBASIC
     Indication: HYPOPHOSPHATAEMIA
     Dosage: 40 MEQ, QD
     Route: 042
     Dates: start: 20170322, end: 20170322
  18. KCL [Concomitant]
     Active Substance: POTASSIUM CHLORIDE
     Dosage: 60 MEQ, QD
     Route: 042
     Dates: start: 20170324, end: 20170330
  19. PETHIDINE [Concomitant]
     Active Substance: MEPERIDINE
     Indication: PAIN
     Dosage: 25 MG, QD
     Route: 042
     Dates: start: 20170315, end: 20170315
  20. PREDNISOLONE. [Concomitant]
     Active Substance: PREDNISOLONE
     Indication: CHEMOTHERAPY
     Dosage: 90 MG, BID
     Route: 048
     Dates: start: 20170307, end: 20170312
  21. SENOKOT [Concomitant]
     Active Substance: SENNOSIDES
     Indication: CONSTIPATION
     Dosage: 15 MG, PRN
     Route: 048
     Dates: start: 20170312, end: 20170312
  22. VINCRISTINE [Concomitant]
     Active Substance: VINCRISTINE
     Indication: CHEMOTHERAPY
     Dosage: 2000 MCG, QD
     Route: 042
     Dates: start: 20170308, end: 20170308
  23. LIPOSOMAL AMPHOTERICIN B [Suspect]
     Active Substance: AMPHOTERICIN B
     Dosage: 3 MG/KG, PER DAY
     Route: 042
     Dates: start: 20170327, end: 20170327
  24. MEROPENEM. [Concomitant]
     Active Substance: MEROPENEM
     Dosage: 1 G, Q8 HOURLY
     Route: 065
     Dates: start: 20170314
  25. CHLORPHENIRAMINE. [Concomitant]
     Active Substance: CHLORPHENIRAMINE
     Indication: PROPHYLAXIS
     Dosage: 10 MG, PRN
     Route: 042
     Dates: start: 20170317, end: 20170323
  26. ENDOXAN [Concomitant]
     Active Substance: CYCLOPHOSPHAMIDE
     Indication: CHEMOTHERAPY
     Dosage: 1088 MG, QD
     Route: 042
     Dates: start: 20170308, end: 20170308
  27. KEPPRA [Concomitant]
     Active Substance: LEVETIRACETAM
     Dosage: 1000 MG, BID
     Route: 042
     Dates: start: 20170318, end: 20170324
  28. METOCLOPRAMIDE. [Concomitant]
     Active Substance: METOCLOPRAMIDE
     Indication: FEEDING INTOLERANCE
     Dosage: 10 MG, QD
     Route: 042
     Dates: start: 20170322, end: 20170323
  29. MORPHINE [Concomitant]
     Active Substance: MORPHINE
     Dosage: 60 MG, QD
     Route: 042
     Dates: start: 20170323, end: 20170323
  30. OMEPRAZOLE. [Concomitant]
     Active Substance: OMEPRAZOLE
     Indication: PROPHYLAXIS
     Dosage: 40 MG, QD
     Route: 042
     Dates: start: 20170318, end: 20170319
  31. ONDANSETRON [Concomitant]
     Active Substance: ONDANSETRON
     Dosage: 8 MG, QD
     Route: 042
     Dates: start: 20170308, end: 20170308
  32. SMOF KABIVEN PI 1300 KCAL [Concomitant]
     Indication: PARENTERAL NUTRITION
     Dosage: 2000 ML, QD
     Route: 042
     Dates: start: 20170327, end: 20170327
  33. IMIPENEM [Concomitant]
     Active Substance: IMIPENEM
     Indication: FEBRILE NEUTROPENIA
     Dosage: 500 MG, QD
     Route: 042
     Dates: start: 20170307, end: 20170307
  34. FLAGYL [Concomitant]
     Active Substance: METRONIDAZOLE\METRONIDAZOLE HYDROCHLORIDE
     Indication: INFECTION
     Dosage: 1500 MG, TID
     Route: 042
     Dates: start: 20170323, end: 20170330
  35. NSS [Concomitant]
     Dosage: 500 ML, QD
     Route: 042
     Dates: start: 20170323
  36. KCL [Concomitant]
     Active Substance: POTASSIUM CHLORIDE
     Dosage: 60 MEQ  (40 MEQ/20ML)
     Route: 065
     Dates: start: 20170320
  37. CREAM BASE [Concomitant]
     Active Substance: CREAM BASE
     Indication: SKIN EXFOLIATION
     Dosage: 1000 G, BID
     Route: 061
     Dates: start: 20170306, end: 20170307
  38. CREAM BASE [Concomitant]
     Active Substance: CREAM BASE
     Dosage: 100 G, BID
     Route: 061
     Dates: start: 20170308, end: 20170322
  39. DESOXIMETASONE 0.25% [Concomitant]
     Indication: METASTASES TO CENTRAL NERVOUS SYSTEM
     Dosage: 20 G, BID
     Route: 061
     Dates: start: 20170307, end: 20170322
  40. FENTANYL. [Concomitant]
     Active Substance: FENTANYL
     Indication: PAIN
     Dosage: 60 MCG, BID
     Route: 042
     Dates: start: 20170311, end: 20170325
  41. KEPPRA [Concomitant]
     Active Substance: LEVETIRACETAM
     Indication: METASTASES TO CENTRAL NERVOUS SYSTEM
     Dosage: 1000 MG, QD
     Route: 048
     Dates: start: 20170306, end: 20170312
  42. MAGNESIUM SULPHATE 50 % [Concomitant]
     Indication: HYPOMAGNESAEMIA
     Dosage: 4 G, QD
     Route: 042
     Dates: start: 20170321, end: 20170321
  43. MORPHINE [Concomitant]
     Active Substance: MORPHINE
     Indication: PAIN
     Dosage: 3 MG, QD
     Route: 042
     Dates: start: 20170312, end: 20170314
  44. DORMICUM [Concomitant]
     Indication: INSOMNIA
     Dosage: 30 MG, QD
     Route: 042
     Dates: start: 20170323, end: 20170323
  45. ONDANSETRON [Concomitant]
     Active Substance: ONDANSETRON
     Indication: VOMITING
     Dosage: 8 MG, QD
     Route: 042
     Dates: start: 20170306, end: 20170306
  46. TAZOCIN [Concomitant]
     Active Substance: PIPERACILLIN SODIUM\TAZOBACTAM SODIUM
     Indication: FEBRILE NEUTROPENIA
     Dosage: 2.25 G, QID
     Route: 042
     Dates: start: 20170307, end: 20170314
  47. TRAMADOL. [Concomitant]
     Active Substance: TRAMADOL
     Indication: PAIN
     Dosage: 150 MG, TID
     Route: 048
     Dates: start: 20170311, end: 20170321
  48. LIPOSOMAL AMPHOTERICIN B [Suspect]
     Active Substance: AMPHOTERICIN B
     Indication: FUNGAL INFECTION
     Dosage: 3 MG/KG PER DAY
     Route: 042
     Dates: start: 20170326, end: 20170326
  49. LEVOPHED [Concomitant]
     Active Substance: NOREPINEPHRINE BITARTRATE
     Dosage: 8 MG, PRN
     Route: 042
     Dates: start: 20170327, end: 20170328
  50. NSS [Concomitant]
     Dosage: 2000 ML, BID
     Route: 042
     Dates: start: 20170305, end: 20170327
  51. DILANTIN XR [Concomitant]
     Indication: METASTASES TO CENTRAL NERVOUS SYSTEM
     Dosage: 400 MG, QD
     Route: 048
     Dates: start: 20170305, end: 20170305
  52. ELOMET 0.1% [Concomitant]
     Indication: METASTASES TO CENTRAL NERVOUS SYSTEM
     Dosage: 30 G, BID
     Route: 061
     Dates: start: 20170307, end: 20170322
  53. GCSF [Concomitant]
     Active Substance: UNSPECIFIED INGREDIENT
     Indication: NEUTROPENIA
     Dosage: 300 MCG, QD
     Route: 042
     Dates: start: 20170322, end: 20170330
  54. JOULIE^S SOLUTION [Concomitant]
     Indication: HYPOPHOSPHATAEMIA
     Dosage: 120 CC, BID
     Route: 048
     Dates: start: 20170311, end: 20170322
  55. KCL [Concomitant]
     Active Substance: POTASSIUM CHLORIDE
     Indication: HYPOKALAEMIA
     Dosage: 120 ML, BID
     Route: 048
     Dates: start: 20170311, end: 20170320
  56. VITAMIN B1 [Concomitant]
     Active Substance: THIAMINE HYDROCHLORIDE
     Indication: HYPOVITAMINOSIS
     Dosage: 100 MG, QD
     Route: 042
     Dates: start: 20170310
  57. HEPARIN [Concomitant]
     Active Substance: HEPARIN SODIUM
     Indication: FLUSHING
     Dosage: 4.5 ML, TID, FLUSH TRIPPLELINE
     Dates: start: 20170329
  58. LIPOSOMAL AMPHOTERICIN B [Suspect]
     Active Substance: AMPHOTERICIN B
     Dosage: 3 MG/KG, PER DAY
     Route: 042
     Dates: start: 20170330, end: 20170330
  59. LEVOPHED [Concomitant]
     Active Substance: NOREPINEPHRINE BITARTRATE
     Indication: SEPTIC SHOCK
     Dosage: 4 MG/4ML
     Route: 042
     Dates: start: 20170327
  60. VANCOMYCIN [Concomitant]
     Active Substance: VANCOMYCIN
     Indication: FEBRILE NEUTROPENIA
     Dosage: 2000 MG, UNK
     Route: 065
     Dates: start: 20170323
  61. VANCOMYCIN [Concomitant]
     Active Substance: VANCOMYCIN
     Dosage: 500 MG, Q6 HOURLY
     Route: 065
  62. VANCOMYCIN [Concomitant]
     Active Substance: VANCOMYCIN
     Dosage: 2 G, BID
     Route: 042
     Dates: start: 20170316, end: 20170331
  63. CHLORPHENIRAMINE. [Concomitant]
     Active Substance: CHLORPHENIRAMINE
     Indication: PREMEDICATION
     Dosage: 10 MG, PRN
     Route: 042
     Dates: start: 20170324, end: 20170330
  64. FUROSEMIDE. [Concomitant]
     Active Substance: FUROSEMIDE
     Dosage: 80 MG, BID
     Route: 042
     Dates: start: 20170316, end: 20170330
  65. KCL [Concomitant]
     Active Substance: POTASSIUM CHLORIDE
     Dosage: 7500 MG, UNK
     Route: 048
     Dates: start: 20170321, end: 20170322
  66. DORMICUM [Concomitant]
     Dosage: 15 MG, QD
     Route: 042
     Dates: start: 20170327, end: 20170330
  67. OMEPRAZOLE. [Concomitant]
     Active Substance: OMEPRAZOLE
     Dosage: 40 MG, BID
     Route: 042
     Dates: start: 20170323, end: 20170330
  68. PARACETAMOL [Concomitant]
     Active Substance: ACETAMINOPHEN
     Indication: PYREXIA
     Dosage: 500 MG, PRN
     Route: 048
     Dates: start: 20170313, end: 20170317
  69. DEXTROSE 50% [Concomitant]
     Active Substance: DEXTROSE
     Indication: HYPOGLYCAEMIA
     Dosage: 50 ML, PRN
     Route: 042
     Dates: start: 20170325, end: 20170327
  70. HYDROCORTISONE. [Concomitant]
     Active Substance: HYDROCORTISONE
     Dosage: 150 MG, UNK
     Route: 065
  71. CLOTRIMAZOLE 10 MG TROCHE [Concomitant]
     Active Substance: CLOTRIMAZOLE
     Indication: ORAL CANDIDIASIS
     Dosage: 50 MG, PRN
     Route: 048
     Dates: start: 20170307, end: 20170314
  72. DEPAKINE CHRONO [Concomitant]
     Active Substance: VALPROATE SODIUM
     Indication: METASTASES TO CENTRAL NERVOUS SYSTEM
     Dosage: 2000 MG, BID
     Route: 048
     Dates: start: 20170312, end: 20170318
  73. FUROSEMIDE. [Concomitant]
     Active Substance: FUROSEMIDE
     Dosage: 1000 MG, BID
     Dates: start: 20170330, end: 20170330
  74. HYDROXYZINE [Concomitant]
     Active Substance: HYDROXYZINE HYDROCHLORIDE
     Indication: PRURITUS
     Dosage: 160 MG, QID
     Route: 048
     Dates: start: 20170306, end: 20170331
  75. MAGNESIUM SULPHATE 50 % [Concomitant]
     Dosage: 4 G, QD
     Route: 042
     Dates: start: 20170328, end: 20170330
  76. ONDANSETRON [Concomitant]
     Active Substance: ONDANSETRON
     Dosage: 16 MG, BID
     Route: 048
     Dates: start: 20170308, end: 20170312
  77. CALCIUM POLYSTYRENE [Concomitant]
     Indication: HYPERKALAEMIA
     Dosage: 100 G, BID
     Route: 048
     Dates: start: 20170306, end: 20170306
  78. DIAZEPAM. [Concomitant]
     Active Substance: DIAZEPAM
     Indication: INSOMNIA
     Dosage: 5 MG, BID
     Route: 042
     Dates: start: 20170318, end: 20170318
  79. KCL [Concomitant]
     Active Substance: POTASSIUM CHLORIDE
     Dosage: 60 MEQ, QD
     Route: 042
     Dates: start: 20170320, end: 20170330
  80. LIDOCAINE VISCOUS 2% [Concomitant]
     Indication: MUCOSAL INFLAMMATION
     Dosage: 20 ML, TID
     Route: 061
     Dates: start: 20170310, end: 20170311

REACTIONS (2)
  - Septic shock [Fatal]
  - Hypokalaemia [Recovered/Resolved]

NARRATIVE: CASE EVENT DATE: 20170327
